FAERS Safety Report 24406837 (Version 2)
Quarter: 2024Q4

REPORT INFORMATION
  Report Type: Spontaneous
  Country: US (occurrence: US)
  Receive Date: 20241007
  Receipt Date: 20241029
  Transmission Date: 20250115
  Serious: No
  Sender: MYLAN
  Company Number: US-MYLANLABS-2024M1087702

PATIENT
  Age: 70 Year
  Sex: Female
  Weight: 97.52 kg

DRUGS (2)
  1. LIDOCAINE PATCH [Suspect]
     Active Substance: LIDOCAINE
     Indication: Bursitis
     Dosage: UNK
     Route: 003
     Dates: start: 2024
  2. LIDOCAINE PATCH [Suspect]
     Active Substance: LIDOCAINE
     Indication: Breast cancer metastatic
     Dosage: 5 PERCENT, PM (2 PATCHES ON HIP, EACH NIGHT)
     Route: 003
     Dates: start: 202410

REACTIONS (5)
  - Application site erosion [Recovered/Resolved]
  - Application site discomfort [Recovered/Resolved]
  - Off label use [Unknown]
  - Product adhesion issue [Unknown]
  - Product design issue [Unknown]

NARRATIVE: CASE EVENT DATE: 20240924
